FAERS Safety Report 12094468 (Version 1)
Quarter: 2016Q1

REPORT INFORMATION
  Report Type: Spontaneous
  Country: FR (occurrence: FR)
  Receive Date: 20160219
  Receipt Date: 20160219
  Transmission Date: 20160526
  Serious: Yes (Other)
  Sender: FDA-Public Use
  Company Number: FR-SA-2016SA030679

PATIENT
  Age: 68 Year
  Sex: Male

DRUGS (7)
  1. ELOXATIN [Suspect]
     Active Substance: OXALIPLATIN
     Indication: COLON CANCER
     Dosage: DAILY DOSE: 140MG
     Route: 042
     Dates: start: 20160119, end: 20160119
  2. POLARAMINE [Suspect]
     Active Substance: DEXCHLORPHENIRAMINE MALEATE
     Indication: PREMEDICATION
     Dosage: DAILY DOSE: 5 MG
     Route: 042
     Dates: start: 20160119, end: 20160119
  3. ZOPHREN [Suspect]
     Active Substance: ONDANSETRON
     Indication: PREMEDICATION
     Dosage: DAILY DOSE: 8MG
     Route: 042
     Dates: start: 20160119, end: 20160119
  4. ERBITUX [Suspect]
     Active Substance: CETUXIMAB
     Indication: COLON CANCER
     Dosage: DAILY DOSE:430 MG
     Route: 042
     Dates: start: 20160119, end: 20160119
  5. CALCIUM FOLINATE [Suspect]
     Active Substance: LEUCOVORIN CALCIUM
     Indication: COLON CANCER
     Dosage: DAILY DOSE: 340MG
     Route: 042
     Dates: start: 20160119, end: 20160119
  6. ELOXATIN [Suspect]
     Active Substance: OXALIPLATIN
     Indication: COLON CANCER
     Dosage: DAILY DOSE: 140MG
     Route: 042
     Dates: start: 20160119, end: 20160119
  7. SOLU-MEDROL [Suspect]
     Active Substance: METHYLPREDNISOLONE SODIUM SUCCINATE
     Indication: PREMEDICATION
     Dosage: DAILY DOSE : 40 MG
     Route: 042
     Dates: start: 20160119, end: 20160119

REACTIONS (4)
  - Feeling hot [Recovered/Resolved]
  - Sense of oppression [Recovered/Resolved]
  - Flushing [Recovered/Resolved]
  - Anxiety [Recovered/Resolved]

NARRATIVE: CASE EVENT DATE: 20160119
